FAERS Safety Report 19850627 (Version 1)
Quarter: 2021Q3

REPORT INFORMATION
  Report Type: Spontaneous
  Country: BR (occurrence: BR)
  Receive Date: 20210917
  Receipt Date: 20210917
  Transmission Date: 20211014
  Serious: Yes (Other)
  Sender: FDA-Public Use
  Company Number: NVSC2021BR178384

PATIENT
  Age: 40 Year
  Sex: Female
  Weight: 58 kg

DRUGS (5)
  1. GLIFAGE [Concomitant]
     Active Substance: METFORMIN HYDROCHLORIDE
     Indication: POLYCYSTIC OVARIES
     Dosage: 1000 MG, QD
     Route: 048
  2. OMNITROPE [Suspect]
     Active Substance: SOMATROPIN
     Dosage: 0.4 MG, QN
     Route: 058
     Dates: start: 20210709
  3. OMNITROPE [Suspect]
     Active Substance: SOMATROPIN
     Dosage: 0.4 MG, QD
     Route: 058
     Dates: start: 20210712, end: 20210729
  4. OMNITROPE [Suspect]
     Active Substance: SOMATROPIN
     Indication: ALOPECIA
     Dosage: 0.4 MG
     Route: 065
     Dates: start: 20210708
  5. OMNITROPE [Suspect]
     Active Substance: SOMATROPIN
     Dosage: 0.4 MG, BID
     Route: 058

REACTIONS (3)
  - Off label use [Unknown]
  - Initial insomnia [Unknown]
  - Tremor [Recovered/Resolved]

NARRATIVE: CASE EVENT DATE: 20210729
